FAERS Safety Report 4610741-9 (Version None)
Quarter: 2005Q2

REPORT INFORMATION
  Report Type: 
  Country: None (occurrence: None)
  Receive Date: 20050301
  Receipt Date: 20041122
  Transmission Date: 20051028
  Serious: No
  Sender: FDA-Public Use
  Company Number: WAES 0411USA03551

PATIENT
  Age: 70 Year
  Sex: Female

DRUGS (7)
  1. ZETIA [Suspect]
     Indication: BLOOD CHOLESTEROL INCREASED
     Dosage: 10 MG/DAILY/PO
     Route: 048
     Dates: start: 20040901
  2. ACTONEL [Concomitant]
  3. ATROVENT [Concomitant]
  4. CENTRUM [Concomitant]
  5. MIACALCIN [Concomitant]
  6. TUMS [Concomitant]
  7. ASCORBIC ACID [Concomitant]

REACTIONS (1)
  - ALOPECIA [None]
